FAERS Safety Report 4287185-5 (Version None)
Quarter: 2004Q1

REPORT INFORMATION
  Report Type: 
  Country: None (occurrence: None)
  Receive Date: 20040126
  Receipt Date: 20030822
  Transmission Date: 20041129
  Serious: No
  Sender: FDA-Public Use
  Company Number: USA030845161

PATIENT
  Age: 75 Year
  Sex: Female
  Weight: 63 kg

DRUGS (4)
  1. FORTEO [Suspect]
     Indication: OSTEOPOROSIS
     Dosage: 20 UG/DAY
     Dates: start: 20030816
  2. ZOCOR [Concomitant]
  3. ORUVAIL [Concomitant]
  4. CALCIUM [Concomitant]

REACTIONS (4)
  - DEPRESSED MOOD [None]
  - HEADACHE [None]
  - MALAISE [None]
  - NAUSEA [None]
